FAERS Safety Report 13913978 (Version 1)
Quarter: 2017Q3

REPORT INFORMATION
  Report Type: Spontaneous
  Country: US (occurrence: US)
  Receive Date: 20170828
  Receipt Date: 20170828
  Transmission Date: 20171127
  Serious: No
  Sender: FDA-Public Use
  Company Number: US-ROCHE-1140772

PATIENT
  Age: 15 Year
  Sex: Male
  Weight: 92.6 kg

DRUGS (2)
  1. NUTROPIN [Suspect]
     Active Substance: SOMATROPIN
     Route: 065
  2. NUTROPIN [Suspect]
     Active Substance: SOMATROPIN
     Indication: HYPOPITUITARISM
     Route: 065

REACTIONS (3)
  - Skin striae [Unknown]
  - Central obesity [Unknown]
  - Weight increased [Unknown]

NARRATIVE: CASE EVENT DATE: 19980825
